FAERS Safety Report 14538817 (Version 3)
Quarter: 2021Q3

REPORT INFORMATION
  Report Type: Other
  Country: CA (occurrence: CA)
  Receive Date: 20180216
  Receipt Date: 20210730
  Transmission Date: 20211014
  Serious: Yes (Hospitalization, Other)
  Sender: FDA-Public Use
  Company Number: CA-ROCHE-2075098

PATIENT
  Age: 60 Year
  Sex: Female
  Weight: 111.8 kg

DRUGS (10)
  1. XOLAIR [Suspect]
     Active Substance: OMALIZUMAB
     Route: 058
  2. XOLAIR [Suspect]
     Active Substance: OMALIZUMAB
     Route: 058
     Dates: start: 20180502
  3. XOLAIR [Suspect]
     Active Substance: OMALIZUMAB
     Route: 058
     Dates: start: 20181019
  4. VENTOLIN [Concomitant]
     Active Substance: ALBUTEROL SULFATE
  5. XOLAIR [Suspect]
     Active Substance: OMALIZUMAB
     Route: 058
  6. XOLAIR [Suspect]
     Active Substance: OMALIZUMAB
     Route: 058
     Dates: start: 20171227
  7. XOLAIR [Suspect]
     Active Substance: OMALIZUMAB
     Route: 058
     Dates: start: 20180124
  8. XOLAIR [Suspect]
     Active Substance: OMALIZUMAB
     Indication: ASTHMA
     Route: 058
     Dates: start: 20170427
  9. ZENHALE [Concomitant]
     Active Substance: FORMOTEROL FUMARATE\MOMETASONE FUROATE
  10. SPIRIVA [Concomitant]
     Active Substance: TIOTROPIUM BROMIDE MONOHYDRATE

REACTIONS (17)
  - Tachycardia [Recovered/Resolved]
  - Dyspnoea [Unknown]
  - Cough [Unknown]
  - Asthma [Not Recovered/Not Resolved]
  - Cellulitis [Unknown]
  - Dry skin [Unknown]
  - Pain in extremity [Unknown]
  - Pneumonia [Recovering/Resolving]
  - Physical deconditioning [Unknown]
  - Peripheral swelling [Unknown]
  - Oedema peripheral [Unknown]
  - Blood pressure increased [Unknown]
  - Middle insomnia [Unknown]
  - Weight increased [Unknown]
  - Forced expiratory volume decreased [Not Recovered/Not Resolved]
  - Illness [Unknown]
  - Chest discomfort [Unknown]

NARRATIVE: CASE EVENT DATE: 20180110
